FAERS Safety Report 7130201-3 (Version None)
Quarter: 2010Q4

REPORT INFORMATION
  Report Type: 
  Country: None (occurrence: None)
  Receive Date: 20101116
  Receipt Date: 20101101
  Transmission Date: 20110411
  Serious: Yes (Hospitalization)
  Sender: FDA-Public Use
  Company Number: DSJ-2010-19730

PATIENT
  Age: 61 Year
  Sex: Female

DRUGS (3)
  1. SEVIKAR (OLMESARTAN MEDOXOMIL, AMLODIPINE BESILATE) (OLMESARTAN MEDOXO [Suspect]
     Indication: HYPERTENSION
     Dosage: PER ORAL
     Route: 048
     Dates: end: 20100513
  2. BISOPROLOL FUMARATE [Suspect]
     Indication: PRODUCT USED FOR UNKNOWN INDICATION
     Dosage: PER ORAL
     Route: 048
     Dates: end: 20100513
  3. PENTOXIFYLLINE (PENTOXIFYLLINE) (PENTOXIFYLLINE) [Concomitant]

REACTIONS (4)
  - BLOOD PRESSURE DECREASED [None]
  - HYPERKALAEMIA [None]
  - NODAL ARRHYTHMIA [None]
  - RENAL FAILURE ACUTE [None]
